FAERS Safety Report 15452671 (Version 1)
Quarter: 2018Q4

REPORT INFORMATION
  Report Type: Spontaneous
  Country: US (occurrence: US)
  Receive Date: 20181001
  Receipt Date: 20181001
  Transmission Date: 20190204
  Serious: Yes (Other)
  Sender: FDA-Public Use
  Company Number: US-JAZZ-2018-US-012354

PATIENT
  Age: 30 Year
  Sex: Female

DRUGS (1)
  1. XYREM [Suspect]
     Active Substance: SODIUM OXYBATE
     Indication: PRODUCT USED FOR UNKNOWN INDICATION
     Route: 048

REACTIONS (6)
  - Restlessness [Unknown]
  - Somnolence [Unknown]
  - Agitation [Unknown]
  - Irritability [Unknown]
  - Suicide attempt [Unknown]
  - Mydriasis [Unknown]

NARRATIVE: CASE EVENT DATE: 201807
